FAERS Safety Report 26183884 (Version 1)
Quarter: 2025Q4

REPORT INFORMATION
  Report Type: Report from Study
  Country: US (occurrence: None)
  Receive Date: 20251221
  Receipt Date: 20251221
  Transmission Date: 20260118
  Serious: Yes (Other)
  Sender: UCB
  Company Number: US-UCBSA-2025079435

PATIENT

DRUGS (2)
  1. BRIVARACETAM [Suspect]
     Active Substance: BRIVARACETAM
     Indication: Petit mal epilepsy
     Dosage: 100 MILLIGRAM, 2X/DAY (BID)
     Route: 061
  2. VIMPAT [Suspect]
     Active Substance: LACOSAMIDE
     Indication: Petit mal epilepsy
     Dosage: 100 MG, 1 TABLET TWICE DAILY 200MG, 1 TABLET ONCE DAILY
     Route: 061

REACTIONS (4)
  - Partial seizures [Unknown]
  - Urinary tract infection [Recovered/Resolved]
  - Product use in unapproved indication [Unknown]
  - Inappropriate schedule of product administration [Unknown]
